FAERS Safety Report 4581018-5 (Version None)
Quarter: 2005Q1

REPORT INFORMATION
  Report Type: 
  Country: None (occurrence: None)
  Receive Date: 20050214
  Receipt Date: 20040719
  Transmission Date: 20050727
  Serious: No
  Sender: FDA-Public Use
  Company Number: US-GLAXOSMITHKLINE-A0518827A

PATIENT
  Age: 46 Year
  Sex: Male
  Weight: 93.6 kg

DRUGS (5)
  1. LAMICTAL [Suspect]
     Indication: ILL-DEFINED DISORDER
     Dosage: 75MG PER DAY
     Route: 048
     Dates: start: 20040518, end: 20040713
  2. WELLBUTRIN [Concomitant]
     Dosage: 450MG PER DAY
     Route: 048
     Dates: start: 20030331
  3. LEXAPRO [Concomitant]
     Dosage: 20MG PER DAY
     Route: 048
     Dates: start: 20030331
  4. RITALIN [Concomitant]
     Route: 048
     Dates: start: 20030507
  5. AMBIEN [Concomitant]
     Dosage: 10MG PER DAY
     Route: 048
     Dates: start: 20040322

REACTIONS (3)
  - INFECTION [None]
  - PRURITUS [None]
  - RASH [None]
